FAERS Safety Report 7313695-X (Version None)
Quarter: 2011Q1

REPORT INFORMATION
  Report Type: 
  Country: None (occurrence: None)
  Receive Date: 20110225
  Receipt Date: 20110214
  Transmission Date: 20110831
  Serious: Yes (Hospitalization)
  Sender: FDA-Public Use
  Company Number: CA-ELI_LILLY_AND_COMPANY-CA201010006857

PATIENT
  Sex: Male
  Weight: 53.5 kg

DRUGS (3)
  1. RISPERDONE [Concomitant]
     Dosage: 1 MG, EACH EVENING
  2. STRATTERA [Suspect]
     Indication: ATTENTION DEFICIT/HYPERACTIVITY DISORDER
     Dosage: 40 MG, UNK
     Route: 048
     Dates: end: 20100816
  3. STRATTERA [Suspect]
     Dosage: UNK, UNKNOWN
     Dates: start: 20101109

REACTIONS (2)
  - LETHARGY [None]
  - DELIRIUM [None]
